FAERS Safety Report 13634286 (Version 1)
Quarter: 2017Q2

REPORT INFORMATION
  Report Type: Spontaneous
  Country: DE (occurrence: DE)
  Receive Date: 20170609
  Receipt Date: 20170609
  Transmission Date: 20170830
  Serious: Yes (Life-Threatening, Hospitalization, Other)
  Sender: FDA-Public Use
  Company Number: DE-SUN PHARMACEUTICAL INDUSTRIES LTD-2017RR-142674

PATIENT
  Age: 30 Year
  Sex: Female
  Weight: 55 kg

DRUGS (6)
  1. FENTANYL. [Concomitant]
     Active Substance: FENTANYL
     Indication: STUPOR
     Dosage: UNK, SINGLE, ONE TIME INTAKE
     Route: 048
  2. AMOXICILLIN. [Concomitant]
     Active Substance: AMOXICILLIN
     Indication: ANTIBIOTIC PROPHYLAXIS
     Dosage: UNK
     Route: 065
     Dates: start: 20170324, end: 20170330
  3. THIOPENTAL [Concomitant]
     Active Substance: THIOPENTAL
     Indication: STUPOR
     Dosage: UNK, SINGLE, ONE TIME INTAKE
     Route: 048
  4. CIPROFLOXACIN. [Suspect]
     Active Substance: CIPROFLOXACIN
     Indication: SINUSITIS
     Dosage: 500 MG, BID
     Route: 048
     Dates: start: 20170418, end: 20170422
  5. REMIFENTANIL [Concomitant]
     Active Substance: REMIFENTANIL
     Indication: STUPOR
     Dosage: UNK, SINGLE, ONE TIME INTAKE
     Route: 048
  6. DESMIN [Concomitant]
     Active Substance: DESOGESTREL\ETHINYL ESTRADIOL
     Indication: CONTRACEPTION
     Dosage: 20 MG, UNK
     Route: 048
     Dates: start: 2005

REACTIONS (1)
  - Drug-induced liver injury [Not Recovered/Not Resolved]

NARRATIVE: CASE EVENT DATE: 20170422
